FAERS Safety Report 8238656-8 (Version None)
Quarter: 2012Q1

REPORT INFORMATION
  Report Type: 
  Country: None (occurrence: None)
  Receive Date: 20120327
  Receipt Date: 20120321
  Transmission Date: 20120608
  Serious: Yes (Hospitalization)
  Sender: FDA-Public Use
  Company Number: FR-AMGEN-FRACT2012006175

PATIENT
  Age: 52 Year
  Sex: Male
  Weight: 85 kg

DRUGS (5)
  1. DOXORUBICIN HCL [Concomitant]
     Dosage: 60 MG, UNK
     Route: 042
     Dates: start: 20111104, end: 20120118
  2. METHOTREXATE [Concomitant]
     Dosage: 60 MG, UNK
     Route: 042
     Dates: start: 20111103, end: 20120118
  3. CISPLATIN [Concomitant]
     Dosage: 70 MG, UNK
     Route: 042
     Dates: start: 20111104, end: 20120118
  4. PANITUMUMAB [Suspect]
     Indication: TRANSITIONAL CELL CARCINOMA
     Dosage: 528 MG, UNK
     Route: 042
     Dates: start: 20111104, end: 20111228
  5. VINBLASTINE SULFATE [Concomitant]
     Dosage: 6 MG, UNK
     Route: 042
     Dates: start: 20111104, end: 20120118

REACTIONS (2)
  - SKIN TOXICITY [None]
  - FEBRILE BONE MARROW APLASIA [None]
